FAERS Safety Report 18693770 (Version 2)
Quarter: 2021Q1

REPORT INFORMATION
  Report Type: Spontaneous
  Country: US (occurrence: US)
  Receive Date: 20210104
  Receipt Date: 20210111
  Transmission Date: 20210419
  Serious: No
  Sender: FDA-Public Use
  Company Number: US-ADVANZ PHARMA-202012011155

PATIENT

DRUGS (1)
  1. HYDROXYCHLOROQUINE SULFATE (AUTHORIZED GENERIC),PLAQUENIL [Suspect]
     Active Substance: HYDROXYCHLOROQUINE SULFATE
     Indication: IMMUNE SYSTEM DISORDER
     Dosage: 1.5 TABLET DAILY (300 MG, QD)
     Route: 065
     Dates: start: 20200820, end: 20201004

REACTIONS (3)
  - Balance disorder [Unknown]
  - Off label use [Unknown]
  - Dizziness [Unknown]
